FAERS Safety Report 9265322 (Version 1)
Quarter: 2013Q2

REPORT INFORMATION
  Report Type: Spontaneous
  Country: US (occurrence: US)
  Receive Date: 20130501
  Receipt Date: 20130501
  Transmission Date: 20140414
  Serious: No
  Sender: FDA-Public Use
  Company Number: US-B.I. PHARMACEUTICALS,INC./RIDGEFIELD-2013-BI-11196BP

PATIENT
  Age: 77 Year
  Sex: Female
  Weight: 106 kg

DRUGS (5)
  1. SPIRIVA [Suspect]
     Indication: CHRONIC OBSTRUCTIVE PULMONARY DISEASE
     Dosage: 18 MCG
     Route: 055
     Dates: start: 201212
  2. SPIRIVA [Suspect]
     Route: 048
     Dates: start: 20130422, end: 20130422
  3. COMBIVENT [Suspect]
     Indication: CHRONIC OBSTRUCTIVE PULMONARY DISEASE
     Route: 055
  4. ADVAIR [Concomitant]
     Indication: CHRONIC OBSTRUCTIVE PULMONARY DISEASE
     Route: 055
  5. ALBUTEROL NEBS [Concomitant]
     Route: 055

REACTIONS (3)
  - Incorrect route of drug administration [Recovered/Resolved]
  - Product quality issue [Recovered/Resolved]
  - Product quality issue [Recovered/Resolved]
